FAERS Safety Report 25995352 (Version 1)
Quarter: 2025Q4

REPORT INFORMATION
  Report Type: Spontaneous
  Country: US (occurrence: US)
  Receive Date: 20251104
  Receipt Date: 20251104
  Transmission Date: 20260118
  Serious: No
  Sender: SUNOVION
  Company Number: US-SMPA-2025SPA013088

PATIENT
  Age: 67 Year
  Sex: Female

DRUGS (3)
  1. GEMTESA [Suspect]
     Active Substance: VIBEGRON
     Indication: Stress urinary incontinence
     Dosage: 75 MG
     Route: 048
  2. GEMTESA [Suspect]
     Active Substance: VIBEGRON
     Indication: Micturition urgency
  3. GEMTESA [Suspect]
     Active Substance: VIBEGRON
     Indication: Pollakiuria

REACTIONS (1)
  - Therapeutic product effect incomplete [Unknown]
